FAERS Safety Report 9898687 (Version 2)
Quarter: 2014Q1

REPORT INFORMATION
  Report Type: Spontaneous
  Country: US (occurrence: US)
  Receive Date: 20140214
  Receipt Date: 20140214
  Transmission Date: 20141002
  Serious: No
  Sender: FDA-Public Use
  Company Number: US-GILEAD-2011-0043438

PATIENT
  Age: 64 Year
  Sex: Female
  Weight: 69.4 kg

DRUGS (10)
  1. LETAIRIS [Suspect]
     Indication: PULMONARY HYPERTENSION
     Route: 048
     Dates: start: 20110728, end: 20110815
  2. LETAIRIS [Suspect]
     Indication: INTERSTITIAL LUNG DISEASE
  3. VERAPAMIL [Concomitant]
     Dates: start: 20110504
  4. FUROSEMIDE [Concomitant]
     Dates: start: 20110504
  5. ALENDRONATE SODIUM [Concomitant]
     Dates: start: 20110323
  6. OXYGEN [Concomitant]
  7. MAGNESIUM OXIDE [Concomitant]
     Dates: start: 20101004
  8. ROBITUSSIN DM [Concomitant]
     Dates: start: 20110713
  9. BOOST [Concomitant]
     Dates: start: 20101004
  10. B-100 [Concomitant]
     Dates: start: 20110504

REACTIONS (2)
  - Dyspnoea [Recovered/Resolved]
  - Local swelling [Recovered/Resolved]
